FAERS Safety Report 7611408-5 (Version None)
Quarter: 2011Q3

REPORT INFORMATION
  Report Type: 
  Country: None (occurrence: None)
  Receive Date: 20110707
  Receipt Date: 20110629
  Transmission Date: 20111222
  Serious: Yes (Hospitalization, Other)
  Sender: FDA-Public Use
  Company Number: 2010SP026376

PATIENT
  Age: 35 Year
  Sex: Female
  Weight: 58.0604 kg

DRUGS (2)
  1. NUVARING [Suspect]
     Indication: CONTRACEPTION
     Dates: start: 20080301, end: 20080501
  2. ALBUTEROL SULFATE AUTOHALER [Concomitant]

REACTIONS (20)
  - HYPERCOAGULATION [None]
  - HYPERSENSITIVITY [None]
  - THROMBOPHLEBITIS SUPERFICIAL [None]
  - HEPATIC LESION [None]
  - PARAESTHESIA [None]
  - PULMONARY EMBOLISM [None]
  - PYREXIA [None]
  - ABORTION MISSED [None]
  - INTERNATIONAL NORMALISED RATIO INCREASED [None]
  - ALCOHOL USE [None]
  - HAEMANGIOMA OF LIVER [None]
  - LIMB DISCOMFORT [None]
  - NIGHT SWEATS [None]
  - DEEP VEIN THROMBOSIS [None]
  - PREGNANCY WITH CONTRACEPTIVE DEVICE [None]
  - OEDEMA PERIPHERAL [None]
  - ANXIETY [None]
  - DRUG DOSE OMISSION [None]
  - ASTHMA [None]
  - HYPOPHAGIA [None]
